FAERS Safety Report 21272135 (Version 1)
Quarter: 2022Q3

REPORT INFORMATION
  Report Type: Spontaneous
  Country: CA (occurrence: CA)
  Receive Date: 20220830
  Receipt Date: 20220830
  Transmission Date: 20221027
  Serious: Yes (Other)
  Sender: FDA-Public Use
  Company Number: CA-PFIZER INC-2018357814

PATIENT
  Age: 76 Year
  Sex: Male

DRUGS (4)
  1. XELJANZ [Suspect]
     Active Substance: TOFACITINIB CITRATE
     Indication: Rheumatoid arthritis
     Dosage: 5 MG, ONCE DAILY (QD)
     Route: 048
     Dates: start: 20150812
  2. XELJANZ [Suspect]
     Active Substance: TOFACITINIB CITRATE
     Dosage: 5 MG (1 X 2 DAYS)
     Route: 048
     Dates: start: 201808
  3. XELJANZ [Suspect]
     Active Substance: TOFACITINIB CITRATE
     Dosage: 2 DF, WEEKLY (2 TABS PER WEEK)
     Route: 048
  4. XELJANZ [Suspect]
     Active Substance: TOFACITINIB CITRATE
     Dosage: 3 DF, WEEKLY (3 TABS WEEKLY)
     Route: 048

REACTIONS (3)
  - Renal failure [Unknown]
  - Off label use [Unknown]
  - Creatinine renal clearance decreased [Unknown]
